FAERS Safety Report 8990623 (Version 2)
Quarter: 2015Q4

REPORT INFORMATION
  Report Type: Report from Study
  Country: CA (occurrence: CA)
  Receive Date: 20121228
  Receipt Date: 20151023
  Transmission Date: 20160305
  Serious: Yes (Hospitalization, Other)
  Sender: FDA-Public Use
  Company Number: CA-ROCHE-1170906

PATIENT
  Age: 75 Year
  Sex: Male
  Weight: 108.96 kg

DRUGS (13)
  1. OMALIZUMAB [Suspect]
     Active Substance: OMALIZUMAB
     Indication: ASTHMA
     Route: 058
     Dates: start: 20080205
  2. OMALIZUMAB [Suspect]
     Active Substance: OMALIZUMAB
     Route: 065
     Dates: start: 20100302
  3. SYMBICORT [Concomitant]
     Active Substance: BUDESONIDE\FORMOTEROL FUMARATE DIHYDRATE
     Indication: PRODUCT USED FOR UNKNOWN INDICATION
     Dosage: UNK
     Route: 065
  4. PREDNISONE. [Concomitant]
     Active Substance: PREDNISONE
     Indication: INFLUENZA
     Route: 065
  5. OMALIZUMAB [Suspect]
     Active Substance: OMALIZUMAB
     Route: 058
     Dates: start: 20100330
  6. VENTOLIN [Concomitant]
     Active Substance: ALBUTEROL SULFATE
     Indication: PRODUCT USED FOR UNKNOWN INDICATION
     Dosage: UNK
     Route: 065
  7. SPIRIVA [Concomitant]
     Active Substance: TIOTROPIUM BROMIDE MONOHYDRATE
     Indication: PRODUCT USED FOR UNKNOWN INDICATION
     Dosage: UNK
     Route: 065
  8. OMALIZUMAB [Suspect]
     Active Substance: OMALIZUMAB
     Route: 058
     Dates: start: 20091208
  9. OMALIZUMAB [Suspect]
     Active Substance: OMALIZUMAB
     Route: 058
     Dates: start: 20091027
  10. OMALIZUMAB [Suspect]
     Active Substance: OMALIZUMAB
     Route: 065
     Dates: start: 20091222
  11. ALVESCO [Concomitant]
     Active Substance: CICLESONIDE
     Indication: PRODUCT USED FOR UNKNOWN INDICATION
     Dosage: UNK
     Route: 065
  12. OMALIZUMAB [Suspect]
     Active Substance: OMALIZUMAB
     Route: 058
     Dates: start: 20091124
  13. SINGULAIR [Concomitant]
     Active Substance: MONTELUKAST SODIUM
     Indication: PRODUCT USED FOR UNKNOWN INDICATION
     Dosage: UNK
     Route: 065

REACTIONS (19)
  - Respiratory disorder [Unknown]
  - Asthenia [Unknown]
  - Oropharyngeal pain [Unknown]
  - Poor quality sleep [Unknown]
  - Anxiety [Unknown]
  - Blood pressure decreased [Unknown]
  - Fatigue [Unknown]
  - Arthritis [Unknown]
  - Joint injury [Unknown]
  - Bronchitis [Unknown]
  - Body temperature decreased [Unknown]
  - Nasopharyngitis [Unknown]
  - Occupational exposure to dust [Unknown]
  - Tendonitis [Unknown]
  - Influenza [Unknown]
  - Pulmonary mass [Unknown]
  - Nervousness [Unknown]
  - Hypoaesthesia [Unknown]
  - Lung disorder [Unknown]

NARRATIVE: CASE EVENT DATE: 201509
